FAERS Safety Report 11347203 (Version 1)
Quarter: 2015Q3

REPORT INFORMATION
  Report Type: Spontaneous
  Country: US (occurrence: US)
  Receive Date: 20150803
  Receipt Date: 20150803
  Transmission Date: 20151125
  Serious: No
  Sender: FDA-Public Use
  Company Number: US-ELI_LILLY_AND_COMPANY-US201104006833

PATIENT
  Sex: Male

DRUGS (1)
  1. ZYPREXA [Suspect]
     Active Substance: OLANZAPINE
     Indication: SCHIZOPHRENIA
     Dosage: 2.5 MG, QD

REACTIONS (12)
  - Condition aggravated [Unknown]
  - Anxiety [Unknown]
  - Feeling abnormal [Unknown]
  - Aggression [Unknown]
  - Middle insomnia [Unknown]
  - Amnesia [Unknown]
  - Cerebral disorder [Unknown]
  - Drug ineffective [Unknown]
  - Depressed mood [Unknown]
  - Confusional state [Unknown]
  - Agitation [Unknown]
  - Delusion [Unknown]
